FAERS Safety Report 4394942-3 (Version None)
Quarter: 2004Q3

REPORT INFORMATION
  Report Type: 
  Country: None (occurrence: None)
  Receive Date: 20040712
  Receipt Date: 20040630
  Transmission Date: 20050211
  Serious: Yes (Death)
  Sender: FDA-Public Use
  Company Number: GB-GLAXOSMITHKLINE-B0337419A

PATIENT
  Age: 68 Year
  Sex: Female
  Weight: 80 kg

DRUGS (5)
  1. PAROXETINE HCL [Suspect]
     Indication: DEPRESSION
     Route: 048
     Dates: start: 20031001, end: 20031101
  2. CLARITHROMYCIN [Suspect]
     Indication: LOWER RESPIRATORY TRACT INFECTION
     Route: 048
     Dates: start: 20031101, end: 20031101
  3. THEOPHYLLINE [Suspect]
     Route: 065
  4. HORMONE REPLACEMENT THERAPY [Concomitant]
     Route: 065
  5. ANTACID TAB [Concomitant]
     Route: 065

REACTIONS (5)
  - CARDIOMYOPATHY [None]
  - CARDIOTOXICITY [None]
  - CORONARY ARTERY THROMBOSIS [None]
  - DRUG INTERACTION [None]
  - MYOCARDIAL INFARCTION [None]
